FAERS Safety Report 8894821 (Version 1)
Quarter: 2012Q4

REPORT INFORMATION
  Report Type: 
  Country: CA (occurrence: CA)
  Receive Date: 20121107
  Receipt Date: 20121107
  Transmission Date: 20130627
  Serious: Yes (Other)
  Sender: FDA-Public Use
  Company Number: PHMT2006CA01770

PATIENT
  Sex: Male

DRUGS (12)
  1. SANDOSTATIN LAR [Suspect]
     Indication: ANGIODYSPLASIA
     Dosage: 20 mg, every 4 weeks
     Dates: start: 20060721
  2. HYDROMORPHONE [Concomitant]
  3. IRON [Concomitant]
  4. LACTULOSE [Concomitant]
  5. LASIX [Concomitant]
  6. NADOLOL [Concomitant]
  7. NOVO-GESIC [Concomitant]
  8. NOVOSPIROTON [Concomitant]
  9. OXAZEPAM [Concomitant]
  10. PANTOPRAZOLE [Concomitant]
  11. DOMPERIDONE [Concomitant]
  12. SUCRALFATE [Concomitant]

REACTIONS (5)
  - Blood pressure diastolic decreased [Unknown]
  - Flushing [Unknown]
  - Hyperhidrosis [Unknown]
  - Blood glucose increased [Unknown]
  - Heart rate decreased [Unknown]
